FAERS Safety Report 9655974 (Version 1)
Quarter: 2013Q4

REPORT INFORMATION
  Report Type: Spontaneous
  Country: US (occurrence: None)
  Receive Date: 20131029
  Receipt Date: 20131029
  Transmission Date: 20140711
  Serious: Yes (Other)
  Sender: FDA-Public Use
  Company Number: None

PATIENT
  Age: 51 Year
  Sex: Male
  Weight: 68.04 kg

DRUGS (1)
  1. CEPHALEXIN [Suspect]
     Indication: NEPHROLITHIASIS
     Dosage: 1 CAPSULE TWICE DAILY TAKEN BY MOUTH
     Route: 048
     Dates: start: 20120606, end: 20120609

REACTIONS (6)
  - Dyspepsia [None]
  - Decreased appetite [None]
  - Nausea [None]
  - Abdominal pain upper [None]
  - Abdominal pain upper [None]
  - Fatigue [None]
